FAERS Safety Report 6830891-6 (Version None)
Quarter: 2010Q3

REPORT INFORMATION
  Report Type: 
  Country: None (occurrence: None)
  Receive Date: 20100712
  Receipt Date: 20100629
  Transmission Date: 20110219
  Serious: Yes (Other)
  Sender: FDA-Public Use
  Company Number: BR-BAYER-201013873LA

PATIENT
  Age: 62 Year
  Sex: Male
  Weight: 59 kg

DRUGS (4)
  1. NEXAVAR [Suspect]
     Indication: HEPATIC NEOPLASM MALIGNANT
     Dosage: TOTAL DAILY DOSE: 800 MG  UNIT DOSE: 200 MG
     Route: 048
     Dates: start: 20100325
  2. RANITIDINE [Concomitant]
     Route: 048
     Dates: start: 20091228
  3. PROPRANOLOL [Concomitant]
     Route: 048
     Dates: start: 20091228
  4. LASIX [Concomitant]
     Indication: FLUID RETENTION
     Dosage: 2 TABLETS / WEEK
     Route: 048
     Dates: start: 20091228

REACTIONS (16)
  - ABDOMINAL PAIN [None]
  - ASTHENIA [None]
  - BACK PAIN [None]
  - BLOOD PRESSURE DECREASED [None]
  - BONE EROSION [None]
  - CHILLS [None]
  - DECREASED APPETITE [None]
  - DEPRESSED MOOD [None]
  - DIARRHOEA [None]
  - DYSGEUSIA [None]
  - HEPATIC NEOPLASM MALIGNANT [None]
  - NAUSEA [None]
  - PAIN IN EXTREMITY [None]
  - TUMOUR NECROSIS [None]
  - VOMITING [None]
  - WEIGHT DECREASED [None]
